FAERS Safety Report 18154646 (Version 1)
Quarter: 2020Q3

REPORT INFORMATION
  Report Type: Other
  Country: ES (occurrence: ES)
  Receive Date: 20200817
  Receipt Date: 20200817
  Transmission Date: 20201103
  Serious: Yes (Other)
  Sender: FDA-Public Use
  Company Number: ES-DENTSPLY-2020SCDP000253

PATIENT
  Age: 35 Year
  Sex: Female

DRUGS (1)
  1. MEPIVACAINE HCL [Suspect]
     Active Substance: MEPIVACAINE HYDROCHLORIDE
     Indication: LOCAL ANAESTHESIA
     Dosage: 5 MILLILITER, TOTAL,MEPIVACAINA NORMON 2% SOLUTION INJECTABLE EFG
     Route: 058
     Dates: start: 20200725, end: 20200725

REACTIONS (3)
  - Urticaria [None]
  - Anaphylactic reaction [None]
  - Pharyngeal oedema [None]

NARRATIVE: CASE EVENT DATE: 20200725
